FAERS Safety Report 13798169 (Version 1)
Quarter: 2017Q3

REPORT INFORMATION
  Report Type: Spontaneous
  Country: US (occurrence: US)
  Receive Date: 20170726
  Receipt Date: 20170726
  Transmission Date: 20171127
  Serious: No
  Sender: FDA-Public Use
  Company Number: None

PATIENT
  Age: 83 Year
  Sex: Male
  Weight: 94.95 kg

DRUGS (5)
  1. LOVENOX [Suspect]
     Active Substance: ENOXAPARIN SODIUM
     Indication: THROMBOSIS PROPHYLAXIS
     Dates: start: 20170726, end: 20170726
  2. ASPIRIN. [Concomitant]
     Active Substance: ASPIRIN
  3. METAMUCIL [Concomitant]
     Active Substance: PLANTAGO SEED
  4. ALLOPURINOL. [Concomitant]
     Active Substance: ALLOPURINOL
  5. METOPROLOL. [Concomitant]
     Active Substance: METOPROLOL

REACTIONS (3)
  - Anger [None]
  - Irritability [None]
  - Hallucinations, mixed [None]

NARRATIVE: CASE EVENT DATE: 20170726
